FAERS Safety Report 10082744 (Version 1)
Quarter: 2014Q2

REPORT INFORMATION
  Report Type: Spontaneous
  Country: KR (occurrence: KR)
  Receive Date: 20140416
  Receipt Date: 20140416
  Transmission Date: 20141212
  Serious: Yes (Hospitalization, Other)
  Sender: FDA-Public Use
  Company Number: PHHY2014KR042153

PATIENT
  Age: 11 Year
  Sex: Female

DRUGS (5)
  1. LAMOTRIGINE [Suspect]
     Indication: MAJOR DEPRESSION
     Dosage: 25 MG, PER DAY
  2. LAMOTRIGINE [Suspect]
     Indication: TIC
  3. FLUOXETIN [Concomitant]
  4. VALPROATE [Concomitant]
  5. RISPERIDONE [Concomitant]

REACTIONS (19)
  - Toxic epidermal necrolysis [Recovering/Resolving]
  - Rash erythematous [Recovering/Resolving]
  - Infection [Unknown]
  - Pruritus [Recovering/Resolving]
  - Mouth ulceration [Recovering/Resolving]
  - Pyrexia [Recovering/Resolving]
  - Pain of skin [Recovering/Resolving]
  - Oral pain [Recovering/Resolving]
  - Skin lesion [Recovering/Resolving]
  - Purpura [Recovering/Resolving]
  - Blister [Recovering/Resolving]
  - Scab [Recovering/Resolving]
  - C-reactive protein increased [Recovering/Resolving]
  - Pyuria [Recovering/Resolving]
  - Eye disorder [Recovering/Resolving]
  - Rash maculo-papular [Recovering/Resolving]
  - Thrombosis [Recovering/Resolving]
  - Dysphagia [Unknown]
  - Incorrect dose administered [Unknown]
